FAERS Safety Report 12808802 (Version 2)
Quarter: 2016Q4

REPORT INFORMATION
  Report Type: Spontaneous
  Country: JP (occurrence: JP)
  Receive Date: 20161004
  Receipt Date: 20161115
  Transmission Date: 20170207
  Serious: Yes (Hospitalization)
  Sender: FDA-Public Use
  Company Number: JP-ACTELION-A-CH2016-136349

PATIENT
  Age: 33 Year
  Sex: Female
  Weight: 68.4 kg

DRUGS (5)
  1. TADALAFIL [Suspect]
     Active Substance: TADALAFIL
     Indication: PULMONARY ARTERIAL HYPERTENSION
     Dosage: 20 MG, BID
     Route: 048
     Dates: start: 20151208, end: 20160413
  2. OPSUMIT [Suspect]
     Active Substance: MACITENTAN
     Indication: PULMONARY ARTERIAL HYPERTENSION
     Dosage: 10 MG, QD
     Route: 048
     Dates: start: 20150805, end: 20160926
  3. BERAPROST SODIUM [Concomitant]
     Active Substance: BERAPROST SODIUM
  4. RIOCIGUAT [Concomitant]
     Active Substance: RIOCIGUAT
  5. TORASEMIDE [Concomitant]
     Active Substance: TORSEMIDE

REACTIONS (4)
  - Pulmonary arterial hypertension [Recovering/Resolving]
  - Eye symptom [Recovered/Resolved]
  - Condition aggravated [Recovering/Resolving]
  - Pregnancy [Unknown]

NARRATIVE: CASE EVENT DATE: 20160504
